FAERS Safety Report 8153516-9 (Version None)
Quarter: 2012Q1

REPORT INFORMATION
  Report Type: 
  Country: None (occurrence: None)
  Receive Date: 20120221
  Receipt Date: 20120213
  Transmission Date: 20120608
  Serious: Yes (Hospitalization)
  Sender: FDA-Public Use
  Company Number: US-ABBOTT-12P-163-0904351-00

PATIENT
  Sex: Female
  Weight: 87.622 kg

DRUGS (5)
  1. VITAMIN D [Suspect]
     Indication: VITAMIN D DECREASED
     Dosage: TOOK FOR 3 DAYS   54,000 UNITS
  2. NIASPAN [Suspect]
     Indication: LOW DENSITY LIPOPROTEIN INCREASED
     Dosage: PT CURRENTLY TAKING 1500 MG BEFORE BED
  3. ASPIRIN [Concomitant]
     Indication: FLUSHING
  4. TRICOR [Concomitant]
     Indication: PRODUCT USED FOR UNKNOWN INDICATION
  5. NIASPAN [Suspect]
     Indication: BLOOD TRIGLYCERIDES INCREASED
     Dates: start: 20040601

REACTIONS (7)
  - DIZZINESS [None]
  - ANKLE FRACTURE [None]
  - PARAESTHESIA [None]
  - VITAMIN D DECREASED [None]
  - ERYTHEMA [None]
  - FLUSHING [None]
  - OSTEOPENIA [None]
